FAERS Safety Report 8641314 (Version 2)
Quarter: 2012Q4

REPORT INFORMATION
  Report Type: 
  Country: US (occurrence: US)
  Receive Date: 20120628
  Receipt Date: 20120907
  Transmission Date: 20130627
  Serious: Yes (Other)
  Sender: FDA-Public Use
  Company Number: US-ASTRAZENECA-2012SE41493

PATIENT
  Age: 63 Year
  Sex: Male
  Weight: 89.4 kg

DRUGS (9)
  1. NEXIUM [Suspect]
     Indication: GASTROOESOPHAGEAL REFLUX DISEASE
     Route: 048
     Dates: start: 2002, end: 201207
  2. SOMA [Concomitant]
     Indication: MUSCLE RELAXANT THERAPY
     Route: 048
  3. SOMA [Concomitant]
     Indication: PAIN MANAGEMENT
     Route: 048
  4. SOMA [Concomitant]
     Indication: ANTIINFLAMMATORY THERAPY
     Route: 048
  5. DOXEPIN [Concomitant]
     Indication: ELEVATED MOOD
     Route: 048
  6. SI [Concomitant]
     Indication: BACK PAIN
  7. ZANTAC [Concomitant]
     Indication: GASTROOESOPHAGEAL REFLUX DISEASE
     Dosage: DAILY
     Route: 048
  8. PREVACID [Concomitant]
     Indication: GASTROOESOPHAGEAL REFLUX DISEASE
     Dosage: QAM
     Route: 048
  9. ULTRAM [Concomitant]
     Indication: BACK DISORDER
     Route: 048

REACTIONS (7)
  - Gastrooesophageal reflux disease [Unknown]
  - Loss of consciousness [Unknown]
  - Palpitations [Unknown]
  - Muscle spasms [Unknown]
  - Intentional drug misuse [Unknown]
  - Off label use [Unknown]
  - Drug dose omission [Unknown]
